FAERS Safety Report 15154591 (Version 1)
Quarter: 2018Q3

REPORT INFORMATION
  Report Type: Spontaneous
  Country: US (occurrence: US)
  Receive Date: 20180620
  Receipt Date: 20180620
  Transmission Date: 20181010
  Serious: Yes (Life-Threatening)
  Sender: FDA-Public Use
  Company Number: None

PATIENT
  Age: 26 Year
  Sex: Female
  Weight: 118.39 kg

DRUGS (1)
  1. NEXPLANON [Suspect]
     Active Substance: ETONOGESTREL

REACTIONS (9)
  - Implant site infection [None]
  - Abdominal pain [None]
  - Complication of device removal [None]
  - Implant site swelling [None]
  - Pain in extremity [None]
  - Hypoaesthesia [None]
  - Drug hypersensitivity [None]
  - Furuncle [None]
  - Ovarian cyst [None]

NARRATIVE: CASE EVENT DATE: 20180601
